FAERS Safety Report 7157484-8 (Version None)
Quarter: 2010Q4

REPORT INFORMATION
  Report Type: 
  Country: None (occurrence: None)
  Receive Date: 20101214
  Receipt Date: 20061005
  Transmission Date: 20110411
  Serious: Yes (Hospitalization)
  Sender: FDA-Public Use
  Company Number: B0689097A

PATIENT

DRUGS (1)
  1. DILATREND [Suspect]
     Dosage: 12.5MG PER DAY
     Route: 065

REACTIONS (2)
  - CARDIAC FAILURE [None]
  - INAPPROPRIATE SCHEDULE OF DRUG ADMINISTRATION [None]
